FAERS Safety Report 17048760 (Version 1)
Quarter: 2019Q4

REPORT INFORMATION
  Report Type: Spontaneous
  Country: US (occurrence: US)
  Receive Date: 20191118
  Receipt Date: 20191118
  Transmission Date: 20200122
  Serious: Yes (Life-Threatening)
  Sender: FDA-Public Use
  Company Number: None

PATIENT
  Age: 65 Year
  Sex: Male
  Weight: 72.8 kg

DRUGS (14)
  1. OMEPRAZOLE 20 MG [Concomitant]
     Active Substance: OMEPRAZOLE
  2. CLOZAPINE. [Suspect]
     Active Substance: CLOZAPINE
     Indication: SCHIZOPHRENIA
     Route: 048
  3. PROPRANOLOL 120 MG [Concomitant]
  4. IBUPROFEN 600 MG [Concomitant]
     Active Substance: IBUPROFEN
  5. FENOFIBRATE 145 MG [Concomitant]
     Active Substance: FENOFIBRATE
  6. FLUOXETINE [Concomitant]
     Active Substance: FLUOXETINE HYDROCHLORIDE
  7. BENZTROPINE 0.5 MG [Concomitant]
  8. BISACODYL 10 MG [Concomitant]
  9. SENNOSIDES 8.6 MG [Concomitant]
  10. MILK OF MAGNESIA 4TBSP [Concomitant]
  11. ASPIRIN 81 [Concomitant]
     Active Substance: ASPIRIN
  12. HALOPERIDOL 4 MG [Concomitant]
  13. FLUOXETINE [Concomitant]
     Active Substance: FLUOXETINE HYDROCHLORIDE
  14. DOCUSATE 100 MG [Concomitant]

REACTIONS (4)
  - Choking [None]
  - Cardiac arrest [None]
  - Brain injury [None]
  - Dysphagia [None]

NARRATIVE: CASE EVENT DATE: 20191117
